FAERS Safety Report 5010132-5 (Version None)
Quarter: 2006Q2

REPORT INFORMATION
  Report Type: 
  Country: None (occurrence: None)
  Receive Date: 20060404
  Receipt Date: 20051221
  Transmission Date: 20061013
  Serious: No
  Sender: FDA-Public Use
  Company Number: US200512001561

PATIENT
  Age: 59 Year
  Sex: Female

DRUGS (10)
  1. CYMBALTA [Suspect]
     Indication: MUSCLE SPASMS
     Dosage: 60 MG
     Dates: start: 20050401
  2. GLUCOPHAGE ^UNS^ (METFORMIN HYDROCHLORIDE) [Concomitant]
  3. ANTIHYPERTENSIVE AGENT (ANTIHYPERTENSIVE AGENT) [Concomitant]
  4. CLONAZEPAM [Concomitant]
  5. PRILOSEC [Concomitant]
  6. FLONASE [Concomitant]
  7. SEREVENT DISKUS (SALMETEROL XINAFOATE) [Concomitant]
  8. HORMONES AND RELATED AGENTS [Concomitant]
  9. SUCRALFATE [Concomitant]
  10. ADVIL [Concomitant]

REACTIONS (4)
  - BLOOD PRESSURE INCREASED [None]
  - DIZZINESS [None]
  - DRY MOUTH [None]
  - PRURITUS [None]
